FAERS Safety Report 7759726-4 (Version None)
Quarter: 2011Q3

REPORT INFORMATION
  Report Type: 
  Country: None (occurrence: None)
  Receive Date: 20110915
  Receipt Date: 20110831
  Transmission Date: 20111222
  Serious: Yes (Life-Threatening, Hospitalization)
  Sender: FDA-Public Use
  Company Number: 2011SP042202

PATIENT
  Age: 45 Year
  Sex: Male

DRUGS (11)
  1. VALTREX [Concomitant]
  2. ZOPLICONE (ZOPICLONE) [Suspect]
     Indication: INSOMNIA
     Dosage: 7.5 MG;PRN;PO
     Route: 048
     Dates: start: 20100201, end: 20101130
  3. REMERON [Suspect]
     Indication: INSOMNIA
     Dosage: 30 MG;PRN;PO
     Route: 048
     Dates: start: 20080101
  4. RALTEGRAVIR (RALTEGRAVIR) [Suspect]
     Indication: HIV INFECTION
     Dosage: PO
     Route: 048
     Dates: start: 20090527, end: 20091221
  5. WELLBUTRIN [Concomitant]
  6. IMODIUM [Concomitant]
  7. RANITIDINE [Concomitant]
  8. VITAMIN B-12 [Concomitant]
  9. KETOCONAZOLE [Concomitant]
  10. TRUVADA [Concomitant]
  11. ASACOL [Concomitant]

REACTIONS (5)
  - POST PROCEDURAL PNEUMONIA [None]
  - SUICIDE ATTEMPT [None]
  - RESPIRATORY FAILURE [None]
  - MULTIPLE DRUG OVERDOSE INTENTIONAL [None]
  - LOSS OF CONSCIOUSNESS [None]
